FAERS Safety Report 8464822-2 (Version None)
Quarter: 2012Q2

REPORT INFORMATION
  Report Type: 
  Country: None (occurrence: None)
  Receive Date: 20120618
  Receipt Date: 20120601
  Transmission Date: 20120825
  Serious: Yes (Hospitalization)
  Sender: FDA-Public Use
  Company Number: 2012P1039591

PATIENT
  Age: 86 Year
  Sex: Male

DRUGS (6)
  1. ASPIRIN [Concomitant]
  2. DIGOXIN [Suspect]
     Indication: ATRIAL FIBRILLATION
     Dosage: 0.25 MG;QD;PO
     Route: 048
     Dates: start: 20080531, end: 20120531
  3. CORDARONE [Concomitant]
  4. DUTASTERIDE (AVODART) [Concomitant]
  5. OMNIC (TAMSULOSIN HCL) [Concomitant]
  6. COUMADIN [Concomitant]

REACTIONS (4)
  - DYSARTHRIA [None]
  - CONFUSIONAL STATE [None]
  - DYSSTASIA [None]
  - TOXICITY TO VARIOUS AGENTS [None]
